FAERS Safety Report 9780695 (Version 1)
Quarter: 2013Q4

REPORT INFORMATION
  Report Type: Report from Study
  Country: JP (occurrence: JP)
  Receive Date: 20131224
  Receipt Date: 20131224
  Transmission Date: 20140711
  Serious: Yes (Other)
  Sender: FDA-Public Use
  Company Number: JP-ROCHE-1322080

PATIENT
  Sex: 0

DRUGS (6)
  1. CAPECITABINE [Suspect]
     Indication: COLORECTAL CANCER METASTATIC
     Dosage: FOR 2 WEEKS OF A 3-WEEK CYCLE??1ST DOSE ON DAY 1
     Route: 048
  2. CAPECITABINE [Suspect]
     Dosage: LAST DOSE ON DAY 15
     Route: 065
  3. OXALIPLATIN [Suspect]
     Indication: COLORECTAL CANCER METASTATIC
     Dosage: ON DAY 1, 2 HOUR INFUSION
     Route: 042
  4. BEVACIZUMAB [Suspect]
     Indication: COLORECTAL CANCER METASTATIC
     Dosage: 30 TO 90MIN INTRAVENOUS INFUSION PRIOR TO OXALIPLATIN ON DAY 1 OF THE 3WEEK CYCLE
     Route: 065
  5. PANITUMUMAB [Concomitant]
     Route: 065
  6. CETUXIMAB [Concomitant]
     Route: 065

REACTIONS (13)
  - Neurotoxicity [Unknown]
  - Decreased appetite [Unknown]
  - Fatigue [Unknown]
  - Hypersensitivity [Unknown]
  - Hiccups [Unknown]
  - Hypertension [Unknown]
  - Palmar-plantar erythrodysaesthesia syndrome [Unknown]
  - Nausea [Unknown]
  - Vomiting [Unknown]
  - Diarrhoea [Unknown]
  - Mouth ulceration [Unknown]
  - Neutrophil count decreased [Unknown]
  - Platelet count decreased [Unknown]
